FAERS Safety Report 13715990 (Version 1)
Quarter: 2017Q3

REPORT INFORMATION
  Report Type: Spontaneous
  Country: DE (occurrence: DE)
  Receive Date: 20170705
  Receipt Date: 20170705
  Transmission Date: 20171127
  Serious: Yes (Other)
  Sender: FDA-Public Use
  Company Number: DE-TORRENT-00006659

PATIENT
  Age: 33 Year
  Sex: Female
  Weight: 54 kg

DRUGS (10)
  1. PREDNISOLON [Concomitant]
     Active Substance: PREDNISOLONE
  2. COLECALCIFEROL [Concomitant]
     Active Substance: CHOLECALCIFEROL
  3. ASS 100 [Concomitant]
     Active Substance: ASPIRIN
  4. CARVEDILOL. [Suspect]
     Active Substance: CARVEDILOL
  5. PANTOPRAZOLE [Concomitant]
     Active Substance: PANTOPRAZOLE
  6. VITAMIN B12 [Concomitant]
     Active Substance: CYANOCOBALAMIN
  7. AZATHIOPRINE. [Suspect]
     Active Substance: AZATHIOPRINE
  8. CELESTAN [Concomitant]
     Active Substance: BETAMETHASONE
  9. LOSARTAN. [Suspect]
     Active Substance: LOSARTAN
  10. TORASEMIDE [Suspect]
     Active Substance: TORSEMIDE

REACTIONS (2)
  - Exposure during pregnancy [Unknown]
  - Oligohydramnios [Recovered/Resolved]
